FAERS Safety Report 7618429-7 (Version None)
Quarter: 2011Q3

REPORT INFORMATION
  Report Type: 
  Country: None (occurrence: None)
  Receive Date: 20110718
  Receipt Date: 20110712
  Transmission Date: 20111222
  Serious: Yes (Life-Threatening, Hospitalization, Other)
  Sender: FDA-Public Use
  Company Number: DE-PFIZER INC-2011160871

PATIENT
  Age: 72 Year
  Sex: Male
  Weight: 84 kg

DRUGS (10)
  1. TORASEMIDE [Concomitant]
     Dosage: 10 MG, 2X/DAY
     Route: 048
     Dates: start: 20101201, end: 20110417
  2. LEVOTHYROXINE SODIUM [Concomitant]
     Dosage: 50 UG, 1X/DAY
     Route: 048
  3. XALATAN [Concomitant]
     Dosage: 2 GTT, 1X/DAY
     Route: 047
     Dates: start: 20050101
  4. BERODUAL [Concomitant]
     Dosage: UNK
     Route: 055
     Dates: start: 20070101
  5. DIOVAN [Suspect]
     Dosage: 40 MG, 2X/DAY
     Route: 048
     Dates: start: 20110201, end: 20110417
  6. PANTOPRAZOLE [Suspect]
     Dosage: 40 MG, 1X/DAY
     Route: 048
     Dates: start: 20110121, end: 20110418
  7. AMLODIPINE [Concomitant]
     Dosage: 5 MG, 1X/DAY
     Route: 048
     Dates: start: 20101201, end: 20110417
  8. SPIRIVA [Concomitant]
     Dosage: 18 UG, 1X/DAY
     Route: 055
     Dates: start: 20070101
  9. ACETYLCYSTEINE [Concomitant]
     Dosage: 600 MG, 1X/DAY
     Route: 048
     Dates: start: 20101201
  10. AEROMAX [Concomitant]
     Dosage: 50 UG, 2X/DAY
     Route: 055
     Dates: start: 20070101

REACTIONS (1)
  - RENAL FAILURE ACUTE [None]
